FAERS Safety Report 17726067 (Version 8)
Quarter: 2020Q4

REPORT INFORMATION
  Report Type: Report from Study
  Country: US (occurrence: US)
  Receive Date: 20200429
  Receipt Date: 20201120
  Transmission Date: 20210113
  Serious: Yes (Other)
  Sender: FDA-Public Use
  Company Number: NVSC2020US113233

PATIENT
  Sex: Female

DRUGS (2)
  1. BEOVU [Suspect]
     Active Substance: BROLUCIZUMAB-DBLL
     Indication: NEOVASCULAR AGE-RELATED MACULAR DEGENERATION
     Dosage: UNK (LEFT EYE)
     Route: 047
     Dates: start: 20191205
  2. BEOVU [Suspect]
     Active Substance: BROLUCIZUMAB-DBLL
     Dosage: UNK, IN LEFT EYE
     Route: 047
     Dates: start: 20200702

REACTIONS (6)
  - Exposure to SARS-CoV-2 [Unknown]
  - Visual impairment [Unknown]
  - Photophobia [Recovering/Resolving]
  - Eye inflammation [Recovering/Resolving]
  - Sinusitis [Unknown]
  - Intraocular pressure increased [Recovering/Resolving]
